FAERS Safety Report 6699135-2 (Version None)
Quarter: 2010Q2

REPORT INFORMATION
  Report Type: 
  Country: None (occurrence: None)
  Receive Date: 20100427
  Receipt Date: 20100423
  Transmission Date: 20101027
  Serious: Yes (Life-Threatening, Hospitalization)
  Sender: FDA-Public Use
  Company Number: CN-ASTRAZENECA-2010SE18148

PATIENT
  Age: 63 Year
  Sex: Male

DRUGS (18)
  1. CRESTOR [Suspect]
     Indication: HYPERLIPIDAEMIA
     Route: 048
     Dates: start: 20100326, end: 20100326
  2. CRESTOR [Suspect]
     Route: 048
     Dates: start: 20100327, end: 20100421
  3. PLAVIX [Concomitant]
     Indication: ANTICOAGULANT THERAPY
     Dates: start: 20100327, end: 20100328
  4. PLAVIX [Concomitant]
     Dates: start: 20100329
  5. ASPIRIN [Concomitant]
     Indication: ANTIPLATELET THERAPY
     Dates: start: 20100327, end: 20100328
  6. PERINDOPRIL [Concomitant]
     Indication: HYPERTENSION
     Dates: start: 20100327
  7. TIROFIBAN [Concomitant]
     Indication: ANTIPLATELET THERAPY
     Dates: start: 20100327
  8. CONTRAST MEDIA [Concomitant]
     Indication: ANGIOGRAM
     Dates: start: 20100326, end: 20100326
  9. CONTRAST MEDIA [Concomitant]
     Dates: start: 20100419, end: 20100419
  10. NEXIUM [Concomitant]
     Indication: GASTROINTESTINAL HAEMORRHAGE
     Dates: start: 20100329
  11. ALLOPURINOL [Concomitant]
     Indication: HYPERURICAEMIA
     Dates: start: 20100327
  12. TRIMETAZIDINE [Concomitant]
     Dates: start: 20100327
  13. LOMEFLOXACIN [Concomitant]
     Indication: INFECTION
     Dates: start: 20100327
  14. PIPERACILLIN AND TAZOBACTAM [Concomitant]
     Indication: INFECTION
     Dates: start: 20100327
  15. CEREBREX [Concomitant]
  16. ANTONIDINE [Concomitant]
  17. IMDUR [Concomitant]
  18. FRUCTOSE-1 6-BIPHOSPHATASE [Concomitant]

REACTIONS (4)
  - BLOOD CREATINE PHOSPHOKINASE INCREASED [None]
  - BLOOD CREATININE INCREASED [None]
  - MUSCULAR WEAKNESS [None]
  - RHABDOMYOLYSIS [None]
